FAERS Safety Report 10034483 (Version 1)
Quarter: 2014Q1

REPORT INFORMATION
  Report Type: Spontaneous
  Country: US (occurrence: None)
  Receive Date: 20140321
  Receipt Date: 20140321
  Transmission Date: 20141002
  Serious: Yes (Hospitalization)
  Sender: FDA-Public Use
  Company Number: UTC-045828

PATIENT
  Age: 56 Year
  Sex: Male
  Weight: 91.17 kg

DRUGS (2)
  1. TYVASO [Suspect]
     Indication: COR PULMONALE CHRONIC
     Dosage: 18 TO 54 MICROGRAMS (4 IN 1 D), INHALATION
     Route: 055
     Dates: start: 20110411
  2. ADCIRCA (TADALAFIL) (UNKNOWN) [Concomitant]

REACTIONS (1)
  - Cerebral haemorrhage [None]
